FAERS Safety Report 24554156 (Version 1)
Quarter: 2024Q4

REPORT INFORMATION
  Report Type: Report from Study
  Country: US (occurrence: US)
  Receive Date: 20241028
  Receipt Date: 20241028
  Transmission Date: 20250114
  Serious: Yes (Disabling, Other)
  Sender: ABBVIE
  Company Number: US-ABBVIE-5976099

PATIENT
  Sex: Female

DRUGS (1)
  1. HUMIRA [Suspect]
     Active Substance: ADALIMUMAB
     Indication: Product used for unknown indication
     Route: 058
     Dates: start: 20240315

REACTIONS (6)
  - Blindness [Not Recovered/Not Resolved]
  - Cardiac infection [Not Recovered/Not Resolved]
  - Weight decreased [Unknown]
  - Hypoacusis [Unknown]
  - Unevaluable event [Unknown]
  - Helplessness [Unknown]

NARRATIVE: CASE EVENT DATE: 20240101
